FAERS Safety Report 4603415-1 (Version None)
Quarter: 2005Q2

REPORT INFORMATION
  Report Type: 
  Country: None (occurrence: None)
  Receive Date: 20050223
  Receipt Date: 20041124
  Transmission Date: 20051028
  Serious: No
  Sender: FDA-Public Use
  Company Number: 210801

PATIENT
  Age: 50 Year
  Sex: Male

DRUGS (2)
  1. RAPTIVA [Suspect]
     Indication: PSORIASIS
     Dosage: 0.7 ML, SINGLE, SUBCUTANEOUS; 1 ML, 1/WEEK, SUBCUTANEOUS
     Route: 058
     Dates: start: 20011114, end: 20041114
  2. RAPTIVA [Suspect]
     Indication: PSORIASIS
     Dosage: 0.7 ML, SINGLE, SUBCUTANEOUS; 1 ML, 1/WEEK, SUBCUTANEOUS
     Route: 058
     Dates: start: 20041121

REACTIONS (1)
  - NIGHTMARE [None]
